FAERS Safety Report 15737749 (Version 1)
Quarter: 2018Q4

REPORT INFORMATION
  Report Type: Report from Study
  Country: None (occurrence: US)
  Receive Date: 20181219
  Receipt Date: 20181219
  Transmission Date: 20190205
  Serious: Yes (Hospitalization, Other)
  Sender: FDA-Public Use
  Company Number: US-ABBVIE-18S-163-2590636-00

PATIENT
  Age: 83 Year
  Sex: Female

DRUGS (1)
  1. CREON [Suspect]
     Active Substance: PANCRELIPASE AMYLASE\PANCRELIPASE LIPASE\PANCRELIPASE PROTEASE
     Indication: PRODUCT USED FOR UNKNOWN INDICATION
     Route: 048

REACTIONS (29)
  - Myocardial infarction [Unknown]
  - Gastrooesophageal reflux disease [Unknown]
  - Hiatus hernia [Unknown]
  - Cardiac failure congestive [Unknown]
  - Anxiety [Unknown]
  - Diverticulum [Unknown]
  - Pancreatitis chronic [Unknown]
  - Chronic sinusitis [Unknown]
  - Steatorrhoea [Unknown]
  - Osteopenia [Unknown]
  - Upper limb fracture [Unknown]
  - Acute myocardial infarction [Recovered/Resolved]
  - Cholecystectomy [Unknown]
  - Essential hypertension [Unknown]
  - Electrolyte imbalance [Unknown]
  - Asthenia [Unknown]
  - Spinal osteoarthritis [Unknown]
  - Anxiety [Unknown]
  - Diverticulum [Unknown]
  - Deep vein thrombosis [Unknown]
  - Urinary tract infection [Unknown]
  - Lumbar radiculopathy [Unknown]
  - Hyperlipidaemia [Unknown]
  - Pancreatic disorder [Unknown]
  - Cough [Unknown]
  - Hyponatraemia [Unknown]
  - Appendix disorder [Unknown]
  - Colon adenoma [Unknown]
  - Gastrooesophageal reflux disease [Recovered/Resolved]

NARRATIVE: CASE EVENT DATE: 1972
